FAERS Safety Report 21389185 (Version 1)
Quarter: 2022Q3

REPORT INFORMATION
  Report Type: Spontaneous
  Country: NL (occurrence: NL)
  Receive Date: 20220929
  Receipt Date: 20220929
  Transmission Date: 20221027
  Serious: Yes (Other)
  Sender: FDA-Public Use
  Company Number: None

PATIENT
  Sex: Female
  Weight: 73 kg

DRUGS (2)
  1. CLINDAMYCIN [Suspect]
     Active Substance: CLINDAMYCIN
     Indication: Bacterial infection
     Dosage: 1200 MILLIGRAM DAILY; 4 X PER DAY 1 CAPSULE FOR 5 CONSECUTIVE DAYS , STRENGTH : 300MG / BRAND NAME N
     Route: 065
     Dates: start: 20220829
  2. DESLORATADINE [Concomitant]
     Active Substance: DESLORATADINE
     Indication: Product used for unknown indication
     Dosage: 5 MG (MILLIGRAM), STRENGTH  : 5MG / BRAND NAME NOT SPECIFIED, THERAPY START DATE : ASKU , THERAPY EN

REACTIONS (2)
  - Metal poisoning [Not Recovered/Not Resolved]
  - Diarrhoea [Not Recovered/Not Resolved]
